FAERS Safety Report 22749543 (Version 2)
Quarter: 2025Q2

REPORT INFORMATION
  Report Type: Spontaneous
  Country: PT (occurrence: PT)
  Receive Date: 20230726
  Receipt Date: 20250503
  Transmission Date: 20250717
  Serious: Yes (Hospitalization)
  Sender: AUROBINDO
  Company Number: PT-ATRAL-20230153

PATIENT
  Age: 86 Year
  Sex: Female

DRUGS (5)
  1. AMOXICILLIN\CLAVULANIC ACID [Suspect]
     Active Substance: AMOXICILLIN\CLAVULANIC ACID
     Indication: Urinary tract infection
     Route: 065
  2. FLUDROCORTISONE [Concomitant]
     Active Substance: FLUDROCORTISONE
     Indication: Product used for unknown indication
     Route: 065
  3. LEVOTHYROXINE [Concomitant]
     Active Substance: LEVOTHYROXINE
     Indication: Product used for unknown indication
     Route: 065
  4. PREDNISOLONE [Concomitant]
     Active Substance: PREDNISOLONE
     Indication: Product used for unknown indication
     Route: 065
  5. HYDROCORTISONE [Concomitant]
     Active Substance: HYDROCORTISONE
     Indication: Adrenal disorder
     Route: 065

REACTIONS (1)
  - Drug ineffective [Unknown]
